FAERS Safety Report 8606078-3 (Version None)
Quarter: 2012Q3

REPORT INFORMATION
  Report Type: 
  Country: None (occurrence: None)
  Receive Date: 20120820
  Receipt Date: 20120816
  Transmission Date: 20120928
  Serious: Yes (Life-Threatening, Hospitalization)
  Sender: FDA-Public Use
  Company Number: PHHO2012IN011109

PATIENT
  Age: 53 Year
  Sex: Male
  Weight: 57 kg

DRUGS (5)
  1. DERIPHYLLIN [Concomitant]
     Indication: DYSPNOEA
     Dosage: UNK
     Dates: start: 20120112, end: 20120114
  2. IMATINIB MESYLATE [Suspect]
     Indication: CHRONIC MYELOID LEUKAEMIA
     Dosage: 600 MG, QD
     Route: 048
     Dates: start: 20090702, end: 20120125
  3. DEXAMETHASONE [Concomitant]
     Indication: DYSPNOEA
     Dosage: UNK
     Dates: start: 20120112, end: 20120112
  4. RANITIDINE [Concomitant]
     Dosage: UNK
     Dates: start: 20120112, end: 20120114
  5. IMATINIB MESYLATE [Suspect]
     Dosage: 600 MG, QD
     Dates: start: 20120726

REACTIONS (1)
  - ATRIOVENTRICULAR BLOCK COMPLETE [None]
